FAERS Safety Report 20091685 (Version 1)
Quarter: 2021Q4

REPORT INFORMATION
  Report Type: Spontaneous
  Country: US (occurrence: None)
  Receive Date: 20211119
  Receipt Date: 20211119
  Transmission Date: 20220303
  Serious: Yes (Hospitalization)
  Sender: FDA-Public Use
  Company Number: None

PATIENT
  Age: 73 Year
  Sex: Female

DRUGS (1)
  1. REGEN-COV [Suspect]
     Active Substance: CASIRIVIMAB\IMDEVIMAB
     Indication: COVID-19
     Dates: start: 20211116, end: 20211116

REACTIONS (4)
  - Somnolence [None]
  - Tachycardia [None]
  - Hypotension [None]
  - Atrial fibrillation [None]

NARRATIVE: CASE EVENT DATE: 20211116
